FAERS Safety Report 11363784 (Version 1)
Quarter: 2015Q3

REPORT INFORMATION
  Report Type: Spontaneous
  Country: US (occurrence: US)
  Receive Date: 20150811
  Receipt Date: 20150811
  Transmission Date: 20151125
  Serious: No
  Sender: FDA-Public Use
  Company Number: US-MYLANLABS-2015M1018864

PATIENT
  Sex: Male
  Weight: 99.77 kg

DRUGS (10)
  1. LYRICA [Suspect]
     Active Substance: PREGABALIN
     Indication: ARTHRITIS
  2. ETODOLAC. [Concomitant]
     Active Substance: ETODOLAC
     Indication: PAIN
     Dosage: 300 MG, BID
     Route: 048
     Dates: start: 201409
  3. LYRICA [Suspect]
     Active Substance: PREGABALIN
     Indication: BACK INJURY
  4. GABAPENTIN. [Concomitant]
     Active Substance: GABAPENTIN
     Indication: PAIN
     Dosage: 300 MG, QID
     Dates: start: 2013
  5. VENLAFAXINE [Concomitant]
     Active Substance: VENLAFAXINE HYDROCHLORIDE
     Indication: DEPRESSION
     Dosage: 37.5 MG, QD
     Route: 048
  6. LYRICA [Suspect]
     Active Substance: PREGABALIN
     Indication: PAIN
     Dosage: 150 MG, QID
     Dates: start: 201207
  7. LYRICA [Suspect]
     Active Substance: PREGABALIN
     Indication: FIBROMYALGIA
  8. MODAFINIL TABLETS, USP [Suspect]
     Active Substance: MODAFINIL
     Indication: SLEEP DISORDER
     Dosage: 200 MG, QD
     Route: 048
     Dates: start: 201502
  9. DUEXIS [Concomitant]
     Active Substance: FAMOTIDINE\IBUPROFEN
     Indication: PAIN
  10. DUEXIS [Concomitant]
     Active Substance: FAMOTIDINE\IBUPROFEN
     Indication: SWELLING
     Dosage: 800/26.6 MG, TID
     Route: 048
     Dates: start: 2014, end: 201502

REACTIONS (2)
  - Drug effect decreased [Not Recovered/Not Resolved]
  - Drug interaction [Not Recovered/Not Resolved]

NARRATIVE: CASE EVENT DATE: 201502
